FAERS Safety Report 6851379-2 (Version None)
Quarter: 2010Q3

REPORT INFORMATION
  Report Type: 
  Country: None (occurrence: None)
  Receive Date: 20100717
  Receipt Date: 20080115
  Transmission Date: 20110219
  Serious: No
  Sender: FDA-Public Use
  Company Number: US-PFIZER INC-2008006186

PATIENT
  Sex: Female
  Weight: 172.72 kg

DRUGS (8)
  1. CHANTIX [Suspect]
     Indication: SMOKING CESSATION THERAPY
     Dates: start: 20070101
  2. WELLBUTRIN [Concomitant]
     Indication: DEPRESSION
  3. EFFEXOR [Concomitant]
  4. LASIX [Concomitant]
  5. LISINOPRIL [Concomitant]
  6. POTASSIUM CHLORIDE [Concomitant]
  7. METFORMIN HCL [Concomitant]
  8. IBUPROFEN [Concomitant]

REACTIONS (3)
  - INCORRECT DRUG DOSAGE FORM ADMINISTERED [None]
  - MEMORY IMPAIRMENT [None]
  - STRESS [None]
